FAERS Safety Report 18498233 (Version 14)
Quarter: 2021Q1

REPORT INFORMATION
  Report Type: Report from Study
  Country: CO (occurrence: CO)
  Receive Date: 20201112
  Receipt Date: 20210331
  Transmission Date: 20210419
  Serious: Yes (Life-Threatening)
  Sender: FDA-Public Use
  Company Number: CO-TAKEDA-CO201932304

PATIENT
  Age: 35 Year
  Sex: Female
  Weight: 63 kg

DRUGS (3)
  1. ICATIBANT [Suspect]
     Active Substance: ICATIBANT ACETATE
     Indication: HEREDITARY ANGIOEDEMA
     Dosage: 30 MILLIGRAM, PRN
     Route: 058
     Dates: start: 20181129
  2. ICATIBANT [Suspect]
     Active Substance: ICATIBANT ACETATE
     Indication: HEREDITARY ANGIOEDEMA
     Dosage: 30 MILLIGRAM, PRN
     Route: 058
     Dates: start: 20181129
  3. OMEPRAZOLE. [Concomitant]
     Active Substance: OMEPRAZOLE
     Indication: GASTRITIS
     Dosage: UNK
     Route: 065

REACTIONS (12)
  - Gait inability [Recovered/Resolved]
  - Pain of skin [Recovering/Resolving]
  - Pruritus [Recovering/Resolving]
  - Product availability issue [Unknown]
  - Hereditary angioedema [Recovered/Resolved]
  - Influenza [Not Recovered/Not Resolved]
  - Insomnia [Recovering/Resolving]
  - Pain [Recovered/Resolved]
  - Skin burning sensation [Recovering/Resolving]
  - Tonsillitis [Recovered/Resolved]
  - Urticaria [Recovered/Resolved]
  - Prescription drug used without a prescription [Unknown]

NARRATIVE: CASE EVENT DATE: 20200125
